FAERS Safety Report 8070149-3 (Version None)
Quarter: 2012Q1

REPORT INFORMATION
  Report Type: 
  Country: None (occurrence: None)
  Receive Date: 20120125
  Receipt Date: 20120117
  Transmission Date: 20120608
  Serious: Yes (Hospitalization)
  Sender: FDA-Public Use
  Company Number: US-ROCHE-1015288

PATIENT
  Sex: Female
  Weight: 79.45 kg

DRUGS (17)
  1. VEMURAFENIB [Suspect]
     Route: 048
     Dates: start: 20111130, end: 20111205
  2. ESZOPICLONE [Suspect]
     Indication: PRODUCT USED FOR UNKNOWN INDICATION
     Route: 065
     Dates: start: 20030101, end: 20111118
  3. FENTANYL CITRATE [Suspect]
     Dosage: OSE REDUCED BY 50UG IN RESPONSE TO THE SAE
     Dates: start: 20111111, end: 20111120
  4. TRIAMTERENE AND HYDROCHLOROTHIAZIDE [Concomitant]
     Dosage: TDD: 37.5/25 MG
     Dates: start: 20010101, end: 20111120
  5. FENTANYL CITRATE [Suspect]
     Indication: PRODUCT USED FOR UNKNOWN INDICATION
  6. LIPITOR [Concomitant]
     Dates: start: 20020101
  7. LEVOTHYROXINE SODIUM [Concomitant]
     Dates: start: 20040101
  8. VEMURAFENIB [Suspect]
     Route: 048
     Dates: start: 20111205, end: 20111207
  9. TRANDOLAPRIL [Concomitant]
     Dates: start: 20040101, end: 20111120
  10. VEMURAFENIB [Suspect]
     Indication: METASTATIC MALIGNANT MELANOMA
     Route: 048
     Dates: start: 20110916, end: 20111118
  11. LORAZEPAM [Suspect]
     Indication: PRODUCT USED FOR UNKNOWN INDICATION
     Dates: start: 20100201, end: 20111120
  12. ONDANSETRON [Concomitant]
     Dates: start: 20100810
  13. GDC-0973 (MEK INHIBITOR) [Suspect]
     Dosage: RESTARTED ON REDUCED DOSE
     Route: 048
     Dates: start: 20111130, end: 20111201
  14. TRAMADOL HCL [Concomitant]
     Dates: start: 20110428, end: 20111120
  15. GDC-0973 (MEK INHIBITOR) [Suspect]
     Indication: METASTATIC MALIGNANT MELANOMA
     Dosage: DATE OF LAST DOSE PRIOR TO SAE: 17/NOV/2011
     Route: 048
     Dates: start: 20110916, end: 20111118
  16. LORAZEPAM [Concomitant]
     Dates: start: 20100201, end: 20111120
  17. ESZOPICLONE [Suspect]
     Dosage: DOSE FREQUENCY REDUCED TO TWICE WEEKLY IN RESPONSE TO SAE
     Route: 065
     Dates: start: 20111121

REACTIONS (1)
  - MENTAL STATUS CHANGES [None]
